FAERS Safety Report 9936236 (Version 2)
Quarter: 2014Q1

REPORT INFORMATION
  Report Type: Spontaneous
  Country: US (occurrence: US)
  Receive Date: 20140228
  Receipt Date: 20140228
  Transmission Date: 20141002
  Serious: No
  Sender: FDA-Public Use
  Company Number: US-AMGEN-USASP2013078783

PATIENT
  Age: 45 Year
  Sex: Female
  Weight: 78.01 kg

DRUGS (10)
  1. ENBREL [Suspect]
     Indication: RHEUMATOID ARTHRITIS
     Dosage: 50 MG, QWK
     Route: 058
     Dates: start: 20120903
  2. FOLIC ACID [Concomitant]
     Dosage: 20 MG, UNK
  3. EVOXAC [Concomitant]
     Dosage: 30 MG, UNK
  4. CELEXA                             /00582602/ [Concomitant]
     Dosage: 10 MG, UNK
  5. KLONOPIN [Concomitant]
     Dosage: 0.5 MG, UNK
  6. VESICARE [Concomitant]
     Dosage: 10 MG, UNK
  7. OMEPRAZOLE [Concomitant]
     Dosage: 10 MG, UNK
  8. VITAMIN D                          /00107901/ [Concomitant]
     Dosage: 1000 UNIT, UNK
  9. RESTASIS [Concomitant]
     Dosage: 0.05 %, UNK
  10. VITAMIN B12                        /00056201/ [Concomitant]
     Dosage: 1000 CR UNK, UNK

REACTIONS (9)
  - Rheumatoid arthritis [Not Recovered/Not Resolved]
  - Therapeutic response decreased [Unknown]
  - Pain [Unknown]
  - Grip strength decreased [Unknown]
  - Joint swelling [Unknown]
  - Joint warmth [Unknown]
  - Mobility decreased [Unknown]
  - Skin discolouration [Not Recovered/Not Resolved]
  - Rash [Not Recovered/Not Resolved]
